FAERS Safety Report 22239695 (Version 1)
Quarter: 2023Q2

REPORT INFORMATION
  Report Type: Spontaneous
  Country: CA (occurrence: CA)
  Receive Date: 20230421
  Receipt Date: 20230421
  Transmission Date: 20230721
  Serious: Yes (Death)
  Sender: FDA-Public Use
  Company Number: CA-PFIZER INC-202300164635

PATIENT
  Age: 34 Year
  Sex: Female

DRUGS (4)
  1. TRIAZOLAM [Suspect]
     Active Substance: TRIAZOLAM
     Dosage: UNK
  2. AMITRIPTYLINE [Suspect]
     Active Substance: AMITRIPTYLINE
     Dosage: UNK
  3. NORTRIPTYLINE [Suspect]
     Active Substance: NORTRIPTYLINE
     Dosage: UNK
  4. DIETHYLPROPION HYDROCHLORIDE [Suspect]
     Active Substance: DIETHYLPROPION HYDROCHLORIDE
     Dosage: UNK NG/ML

REACTIONS (1)
  - Completed suicide [Fatal]
